FAERS Safety Report 11867544 (Version 1)
Quarter: 2015Q4

REPORT INFORMATION
  Report Type: Spontaneous
  Country: KR (occurrence: KR)
  Receive Date: 20151224
  Receipt Date: 20151224
  Transmission Date: 20160305
  Serious: Yes (Hospitalization)
  Sender: FDA-Public Use
  Company Number: KR-AMGEN-KORCT2015136529

PATIENT
  Age: 62 Year
  Sex: Female
  Weight: 74 kg

DRUGS (39)
  1. G-LASTA [Suspect]
     Active Substance: PEGFILGRASTIM
     Dosage: 6 MG, 1X/3WEEKS
     Route: 058
     Dates: start: 20151004, end: 20151004
  2. DOCETAXEL. [Concomitant]
     Active Substance: DOCETAXEL
     Dosage: 124 MG, UNK
     Route: 042
     Dates: start: 20150822, end: 20150822
  3. DOCETAXEL. [Concomitant]
     Active Substance: DOCETAXEL
     Dosage: 124 MG, UNK
     Route: 042
     Dates: start: 20150912, end: 20150912
  4. CYCLOPHOSPHAMIDE. [Concomitant]
     Active Substance: CYCLOPHOSPHAMIDE
     Dosage: 830 MG, UNK
     Route: 042
     Dates: start: 20150822, end: 20150822
  5. FILGRASTIM [Concomitant]
     Active Substance: FILGRASTIM
     Dosage: 150 MUG, UNK
     Route: 058
     Dates: start: 20150918, end: 20150919
  6. FILGRASTIM [Concomitant]
     Active Substance: FILGRASTIM
     Dosage: 150 MUG, UNK
     Route: 058
     Dates: start: 20151030, end: 20151031
  7. TOBRAMYCIN. [Concomitant]
     Active Substance: TOBRAMYCIN
     Dosage: 200 MG, UNK
     Route: 042
     Dates: start: 20150828, end: 20150830
  8. G-LASTA [Suspect]
     Active Substance: PEGFILGRASTIM
     Indication: FEBRILE NEUTROPENIA
     Dosage: 6 MG, 1X/3WEEKS
     Route: 058
     Dates: start: 20150823, end: 20150823
  9. DOCETAXEL. [Concomitant]
     Active Substance: DOCETAXEL
     Dosage: 124 MG, UNK
     Route: 042
     Dates: start: 20151114, end: 20151114
  10. CYCLOPHOSPHAMIDE. [Concomitant]
     Active Substance: CYCLOPHOSPHAMIDE
     Dosage: 830 MG, UNK
     Route: 042
     Dates: start: 20151114, end: 20151114
  11. CEFOBACTAM [Concomitant]
     Dosage: 2 G, UNK
     Route: 042
     Dates: start: 20151008, end: 20151010
  12. DOXORUBICIN [Concomitant]
     Active Substance: DOXORUBICIN
     Dosage: 82 MG, UNK
     Route: 042
     Dates: start: 20150822, end: 20150822
  13. DOXORUBICIN [Concomitant]
     Active Substance: DOXORUBICIN
     Dosage: 82 MG, UNK
     Route: 042
     Dates: start: 20151114, end: 20151114
  14. CYCLOPHOSPHAMIDE. [Concomitant]
     Active Substance: CYCLOPHOSPHAMIDE
     Dosage: 830 MG, UNK
     Route: 042
     Dates: start: 20151003, end: 20151003
  15. CYCLOPHOSPHAMIDE. [Concomitant]
     Active Substance: CYCLOPHOSPHAMIDE
     Dosage: 830 MG, UNK
     Route: 042
     Dates: start: 20151024, end: 20151024
  16. FILGRASTIM [Concomitant]
     Active Substance: FILGRASTIM
     Dosage: 150 MUG, UNK
     Route: 058
     Dates: start: 20150828, end: 20150829
  17. CEFOBACTAM [Concomitant]
     Dosage: 2 G, UNK
     Route: 042
     Dates: start: 20151030, end: 20151031
  18. CEFOBACTAM [Concomitant]
     Dosage: 2 G, UNK
     Route: 042
     Dates: start: 20151120, end: 20151121
  19. TOBRAMYCIN. [Concomitant]
     Active Substance: TOBRAMYCIN
     Dosage: 200 MG, UNK
     Route: 042
     Dates: start: 20151008, end: 20151010
  20. G-LASTA [Suspect]
     Active Substance: PEGFILGRASTIM
     Dosage: 6 MG, 1X/3WEEKS
     Route: 058
     Dates: start: 20150913, end: 20150913
  21. G-LASTA [Suspect]
     Active Substance: PEGFILGRASTIM
     Dosage: 6 MG, 1X/3WEEKS
     Route: 058
     Dates: start: 20151025, end: 20151025
  22. DOXORUBICIN [Concomitant]
     Active Substance: DOXORUBICIN
     Dosage: 82 MG, UNK
     Route: 042
     Dates: start: 20151024, end: 20151024
  23. CYCLOPHOSPHAMIDE. [Concomitant]
     Active Substance: CYCLOPHOSPHAMIDE
     Dosage: 830 MG, UNK
     Route: 042
     Dates: start: 20151205, end: 20151205
  24. CEFOBACTAM [Concomitant]
     Dosage: 2 G, UNK
     Route: 042
     Dates: start: 20150918, end: 20150919
  25. G-LASTA [Suspect]
     Active Substance: PEGFILGRASTIM
     Dosage: 6 MG, 1X/3WEEKS
     Route: 058
     Dates: start: 20151115, end: 20151115
  26. DOCETAXEL. [Concomitant]
     Active Substance: DOCETAXEL
     Dosage: 124 MG, UNK
     Route: 042
     Dates: start: 20151024, end: 20151024
  27. CYCLOPHOSPHAMIDE. [Concomitant]
     Active Substance: CYCLOPHOSPHAMIDE
     Dosage: 830 MG, UNK
     Route: 042
     Dates: start: 20150912, end: 20150912
  28. TOBRAMYCIN. [Concomitant]
     Active Substance: TOBRAMYCIN
     Dosage: 200 MG, UNK
     Route: 042
     Dates: start: 20151030, end: 20151031
  29. FILGRASTIM [Concomitant]
     Active Substance: FILGRASTIM
     Dosage: 150 MUG, UNK
     Route: 058
     Dates: start: 20151120, end: 20151121
  30. G-LASTA [Suspect]
     Active Substance: PEGFILGRASTIM
     Dosage: 6 MG, 1X/3WEEKS
     Route: 058
     Dates: start: 20151206, end: 20151206
  31. DOXORUBICIN [Concomitant]
     Active Substance: DOXORUBICIN
     Dosage: 82 MG, UNK
     Route: 042
     Dates: start: 20151003, end: 20151003
  32. DOXORUBICIN [Concomitant]
     Active Substance: DOXORUBICIN
     Dosage: 82 MG, UNK
     Route: 042
     Dates: start: 20151205, end: 20151205
  33. FILGRASTIM [Concomitant]
     Active Substance: FILGRASTIM
     Dosage: 150 MUG, UNK
     Route: 058
     Dates: start: 20151008, end: 20151010
  34. CEFOBACTAM [Concomitant]
     Dosage: 2 G, UNK
     Route: 042
     Dates: start: 20150828, end: 20150830
  35. DOCETAXEL. [Concomitant]
     Active Substance: DOCETAXEL
     Dosage: 124 MG, UNK
     Route: 042
     Dates: start: 20151003, end: 20151003
  36. DOCETAXEL. [Concomitant]
     Active Substance: DOCETAXEL
     Dosage: 124 MG, UNK
     Route: 042
     Dates: start: 20151205, end: 20151205
  37. DOXORUBICIN [Concomitant]
     Active Substance: DOXORUBICIN
     Dosage: 82 MG, UNK
     Route: 042
     Dates: start: 20150912, end: 20150912
  38. TOBRAMYCIN. [Concomitant]
     Active Substance: TOBRAMYCIN
     Dosage: 200 MG, UNK
     Route: 042
     Dates: start: 20150918, end: 20150919
  39. TOBRAMYCIN. [Concomitant]
     Active Substance: TOBRAMYCIN
     Dosage: 200 MG, UNK
     Route: 042
     Dates: start: 20151120, end: 20151121

REACTIONS (1)
  - Neutropenia [Recovered/Resolved]

NARRATIVE: CASE EVENT DATE: 20151211
